FAERS Safety Report 18554410 (Version 1)
Quarter: 2020Q4

REPORT INFORMATION
  Report Type: Spontaneous
  Country: FR (occurrence: FR)
  Receive Date: 20201127
  Receipt Date: 20201127
  Transmission Date: 20210114
  Serious: Yes (Other)
  Sender: FDA-Public Use
  Company Number: FR-TEVA-2020-FR-1852568

PATIENT
  Age: 61 Year
  Sex: Female
  Weight: 78 kg

DRUGS (5)
  1. BIOCALYPTOL (PHOLCODINE) [Suspect]
     Active Substance: PHOLCODINE
     Indication: INFLUENZA LIKE ILLNESS
     Dosage: 1 DOSAGE FORM
     Route: 048
     Dates: start: 202002
  2. ZOPICLONE [Concomitant]
     Active Substance: ZOPICLONE
     Dosage: 7.5MG
     Route: 048
  3. TAHOR [Concomitant]
     Active Substance: ATORVASTATIN CALCIUM
     Indication: HYPERCHOLESTEROLAEMIA
     Dosage: 10MG
     Route: 048
  4. AMOXICILLINE [Suspect]
     Active Substance: AMOXICILLIN
     Indication: INFLUENZA LIKE ILLNESS
     Dosage: 1 DOSAGE FORMS
     Route: 048
     Dates: start: 202002
  5. DOLIPRANE [Suspect]
     Active Substance: ACETAMINOPHEN
     Indication: INFLUENZA LIKE ILLNESS
     Dosage: 1 DOSAGE FORMS
     Route: 048
     Dates: start: 202002

REACTIONS (2)
  - Type I hypersensitivity [Recovered/Resolved]
  - Angioedema [Recovered/Resolved]

NARRATIVE: CASE EVENT DATE: 202002
